FAERS Safety Report 13873365 (Version 1)
Quarter: 2017Q3

REPORT INFORMATION
  Report Type: Spontaneous
  Country: US (occurrence: None)
  Receive Date: 20170816
  Receipt Date: 20170816
  Transmission Date: 20171127
  Serious: No
  Sender: FDA-Public Use
  Company Number: None

PATIENT

DRUGS (2)
  1. NEOSTIGMINE 3ML INJ [Suspect]
     Active Substance: NEOSTIGMINE
  2. COVIDIEN MONOJECT 6ML ORAL SYRINGES [Suspect]
     Active Substance: DEVICE

REACTIONS (4)
  - Syringe issue [None]
  - Product packaging confusion [None]
  - Wrong technique in product usage process [None]
  - Device connection issue [None]
